FAERS Safety Report 15525152 (Version 4)
Quarter: 2020Q3

REPORT INFORMATION
  Report Type: Report from Study
  Country: DE (occurrence: DE)
  Receive Date: 20181019
  Receipt Date: 20200929
  Transmission Date: 20201102
  Serious: Yes (Death, Hospitalization, Other)
  Sender: FDA-Public Use
  Company Number: DE-BRISTOL-MYERS SQUIBB COMPANY-BMS-2017-122176

PATIENT
  Age: 28 Year
  Sex: Female
  Weight: 70 kg

DRUGS (36)
  1. MIRTAZAPIN [Concomitant]
     Active Substance: MIRTAZAPINE
     Indication: MALIGNANT MELANOMA
     Dosage: 15 MILLIGRAM, QD
     Route: 048
     Dates: start: 20161011, end: 20161027
  2. FENTANYL CITRATE. [Concomitant]
     Active Substance: FENTANYL CITRATE
     Indication: MALIGNANT MELANOMA
     Dosage: 200 MICROGRAM, PRN
     Route: 048
     Dates: start: 20170202
  3. GLYCEROL;GLYCERYL MONOSTEARATE;PARAFFIN, LIQUID;SIMETICONE;WOOL ALCOHO [Concomitant]
     Indication: MALIGNANT MELANOMA
     Dosage: 1 GRAM, QD
     Route: 054
     Dates: start: 20170131
  4. BISCODYL [Concomitant]
     Active Substance: BISACODYL
     Indication: MALIGNANT MELANOMA
     Dosage: 1 MILLIGRAM, QD
     Route: 054
     Dates: start: 20170131
  5. OXYCODON [Concomitant]
     Active Substance: OXYCODONE
     Indication: MALIGNANT MELANOMA
     Dosage: 10 MILLIGRAM, QD
     Route: 048
     Dates: start: 20161115
  6. INFLIXIMAB [Concomitant]
     Active Substance: INFLIXIMAB
     Indication: MALIGNANT MELANOMA
     Dosage: 5 MILLIGRAM/KILOGRAM, QD
     Route: 042
     Dates: start: 20161026, end: 20161027
  7. PREGABALINE [Concomitant]
     Active Substance: PREGABALIN
     Indication: MALIGNANT MELANOMA
     Dosage: 25 MG, EVERY 3 DAYS
     Route: 048
     Dates: start: 20161014
  8. MCP [Concomitant]
     Active Substance: METOCLOPRAMIDE HYDROCHLORIDE
     Indication: PRODUCT USED FOR UNKNOWN INDICATION
     Dosage: UNK
     Route: 042
     Dates: start: 20161017, end: 20161111
  9. LAXOBERAL [Concomitant]
     Active Substance: SODIUM PICOSULFATE
     Indication: MALIGNANT MELANOMA
     Dosage: 1 GRAM, QD
     Route: 054
     Dates: start: 20170131
  10. PANTOPRAZOL [PANTOPRAZOLE SODIUM SESQUIHYDRATE] [Concomitant]
     Active Substance: PANTOPRAZOLE SODIUM
     Indication: MALIGNANT MELANOMA
     Dosage: 40 MILLIGRAM, QD
     Route: 048
     Dates: start: 20161115
  11. HYDROMORPHONE [Concomitant]
     Active Substance: HYDROMORPHONE
     Indication: MALIGNANT MELANOMA
     Dosage: 0.8 MG, QD (DAILY PER PUMP)
     Route: 058
     Dates: start: 20170504
  12. IPILIMUMAB [Suspect]
     Active Substance: IPILIMUMAB
     Indication: MALIGNANT MELANOMA
     Dosage: 195 MILLIGRAM, Q2WK
     Route: 042
     Dates: start: 20170206, end: 20170321
  13. IBUPROFEN;PSEUDOEPHEDRINE HYDROCHLORIDE [Concomitant]
     Active Substance: IBUPROFEN\PSEUDOEPHEDRINE HYDROCHLORIDE
     Indication: MALIGNANT MELANOMA
     Dosage: 600 MILLIGRAM, TID
     Route: 048
     Dates: start: 20170131
  14. NIVOLUMAB [Suspect]
     Active Substance: NIVOLUMAB
     Indication: MALIGNANT MELANOMA
     Dosage: 65 MILLIGRAM, Q2WK
     Route: 042
     Dates: start: 20170206, end: 20170321
  15. TAFINLAR [Suspect]
     Active Substance: DABRAFENIB MESYLATE
     Dosage: 150 MILLIGRAM, BID
     Route: 048
     Dates: start: 20161112, end: 20170131
  16. BISCODYL [Concomitant]
     Active Substance: BISACODYL
     Dosage: 10 MILLIGRAM
     Route: 054
     Dates: start: 20170224
  17. LAXOBERAL [Concomitant]
     Active Substance: SODIUM PICOSULFATE
     Dosage: 18 DROP
     Route: 048
     Dates: start: 20170224
  18. ZOMETA [Concomitant]
     Active Substance: ZOLEDRONIC ACID
     Indication: MALIGNANT MELANOMA
     Dosage: 4 MG, QD; DRUG INTERVAL DOSAGE UNIT NUMBER WAS 1 DAY.
     Route: 042
     Dates: start: 20161111, end: 20161112
  19. PARACETAMOL [Concomitant]
     Active Substance: ACETAMINOPHEN
     Indication: MALIGNANT MELANOMA
     Dosage: 500 MILLIGRAM, QID
     Route: 048
     Dates: start: 20170419
  20. SODIUM PHOSPHATE [Concomitant]
     Active Substance: SODIUM PHOSPHATE
     Indication: MALIGNANT MELANOMA
     Dosage: 250 ML, QD; DRUG INTERVAL DOSAGE UNIT: 1 DAY
     Route: 042
     Dates: start: 20161027, end: 20161101
  21. ABSTRAL [Concomitant]
     Active Substance: FENTANYL CITRATE
     Indication: MALIGNANT MELANOMA
     Dosage: 471.3 MICROGRAM (6 TIMES PER DAY)
     Route: 048
     Dates: start: 20170419, end: 20170504
  22. DEXAMETHASONE. [Concomitant]
     Active Substance: DEXAMETHASONE
     Indication: MALIGNANT MELANOMA
     Dosage: 4 MILLIGRAM, BID
     Route: 048
     Dates: start: 20170420
  23. TRAMETINIB [Suspect]
     Active Substance: TRAMETINIB
     Dosage: 2 MILLIGRAM, QD
     Route: 048
     Dates: start: 20170412, end: 20170505
  24. TRAMETINIB [Suspect]
     Active Substance: TRAMETINIB
     Dosage: 2 MILLIGRAM, QD
     Route: 048
     Dates: start: 20161112, end: 20170131
  25. METAMIZOLE [Suspect]
     Active Substance: METAMIZOLE
     Indication: MALIGNANT MELANOMA
     Dosage: 1 G, PRN
     Route: 048
  26. ESPUMISAN [DIMETICONE] [Concomitant]
     Indication: PRODUCT USED FOR UNKNOWN INDICATION
     Dosage: UNK UNK, TID
     Route: 048
     Dates: start: 20161027, end: 20161030
  27. TRAMETINIB [Suspect]
     Active Substance: TRAMETINIB
     Indication: METASTATIC MALIGNANT MELANOMA
     Dosage: 2 MILLIGRAM, QD
     Route: 048
     Dates: start: 20161026, end: 20170131
  28. TAFINLAR [Suspect]
     Active Substance: DABRAFENIB MESYLATE
     Indication: METASTATIC MALIGNANT MELANOMA
     Dosage: 150 MILLIGRAM, BID
     Route: 048
     Dates: start: 20161026, end: 20170131
  29. ELEKTROLYT 153 [Concomitant]
     Indication: MALIGNANT MELANOMA
     Dosage: 500 MILLILITER, BID
     Route: 042
     Dates: start: 201704, end: 201704
  30. OLANZAPIN HORMOSAN [Concomitant]
     Indication: MALIGNANT MELANOMA
     Dosage: 5 MILLIGRAM, QD
     Route: 048
     Dates: start: 20170417
  31. GLYCEROL;GLYCERYL MONOSTEARATE;PARAFFIN, LIQUID;SIMETICONE;WOOL ALCOHO [Concomitant]
     Dosage: 1 GRAM
     Route: 048
     Dates: start: 20170224
  32. BISCODYL [Concomitant]
     Active Substance: BISACODYL
     Dosage: 10 MILLIGRAM,EVERY DAY
     Dates: start: 20170131
  33. TAFINLAR [Suspect]
     Active Substance: DABRAFENIB MESYLATE
     Dosage: 150 MILLIGRAM, BID
     Route: 048
     Dates: start: 20170412, end: 20170505
  34. TAZOBAC [PIPERACILLIN SODIUM;TAZOBACTAM SODIUM] [Concomitant]
     Active Substance: PIPERACILLIN SODIUM\TAZOBACTAM SODIUM
     Indication: PRODUCT USED FOR UNKNOWN INDICATION
     Dosage: UNK
     Route: 042
     Dates: start: 20161104, end: 20161108
  35. METHYLPREDNISOLONE. [Concomitant]
     Active Substance: METHYLPREDNISOLONE
     Indication: MALIGNANT MELANOMA
     Dosage: 16 MG (2 STAGGERED), UNK
     Route: 048
     Dates: start: 20061115
  36. MERONEM [Concomitant]
     Active Substance: MEROPENEM
     Indication: PRODUCT USED FOR UNKNOWN INDICATION
     Dosage: 500 MG, QD; DRUG INTERVAL DOSAGE UNIT NUMBER WAS 1 DAY
     Route: 042
     Dates: start: 20161021, end: 20161102

REACTIONS (3)
  - Pharyngitis streptococcal [Recovered/Resolved]
  - Malignant neoplasm progression [Fatal]
  - Metastases to adrenals [Unknown]

NARRATIVE: CASE EVENT DATE: 20170113
